FAERS Safety Report 5410944-X (Version None)
Quarter: 2007Q3

REPORT INFORMATION
  Report Type: 
  Country: None (occurrence: None)
  Receive Date: 20070809
  Receipt Date: 20070809
  Transmission Date: 20080115
  Serious: Yes (Other)
  Sender: FDA-Public Use
  Company Number: None

PATIENT
  Sex: Female
  Weight: 58.514 kg

DRUGS (14)
  1. DEXAMETHASONE [Suspect]
     Indication: AMYLOIDOSIS
     Dosage: 20MG  BIDD1-4, 9-12, 17-20 PO
     Route: 048
  2. REVLIMID [Suspect]
     Indication: AMYLOIDOSIS
     Dosage: 10MG  DAILY 21D/28D PO
     Route: 048
  3. LASIX [Concomitant]
  4. KLOR-CON [Concomitant]
  5. ASPIRIN [Concomitant]
  6. LIPITOR [Concomitant]
  7. ZEITIA [Concomitant]
  8. COLACE [Concomitant]
  9. EPOGEN [Concomitant]
  10. LEVOTHROID [Concomitant]
  11. MIDORINE [Concomitant]
  12. PROTONIX [Concomitant]
  13. LYRICA [Concomitant]
  14. CITALOPRAM [Concomitant]

REACTIONS (6)
  - DYSPNOEA [None]
  - FLUID OVERLOAD [None]
  - OEDEMA PERIPHERAL [None]
  - PITTING OEDEMA [None]
  - SENSATION OF HEAVINESS [None]
  - WEIGHT INCREASED [None]
